FAERS Safety Report 11840241 (Version 4)
Quarter: 2016Q1

REPORT INFORMATION
  Report Type: Spontaneous
  Country: JP (occurrence: JP)
  Receive Date: 20151216
  Receipt Date: 20160215
  Transmission Date: 20160525
  Serious: Yes (Death, Life-Threatening, Hospitalization, Other)
  Sender: FDA-Public Use
  Company Number: JP-PFIZER INC-2015442852

PATIENT
  Age: 91 Year
  Sex: Male

DRUGS (10)
  1. ENALAPRIL /00574902/ [Concomitant]
     Active Substance: ENALAPRIL
     Indication: HYPERTENSION
     Dosage: 2.5 MG, DAILY
     Route: 048
     Dates: end: 20151202
  2. ZOSYN [Suspect]
     Active Substance: PIPERACILLIN SODIUM\TAZOBACTAM SODIUM
     Indication: SEPSIS
     Dosage: 4.5 G, 3X/DAY
     Route: 041
     Dates: start: 20151130, end: 20151202
  3. EVIPROSTAT N [Concomitant]
     Active Substance: HERBALS
     Indication: BENIGN PROSTATIC HYPERPLASIA
     Dosage: 3 DF, DAILY
     Route: 048
     Dates: end: 20151202
  4. TAMSULOSIN HYDROCHLORIDE. [Concomitant]
     Active Substance: TAMSULOSIN HYDROCHLORIDE
     Indication: BENIGN PROSTATIC HYPERPLASIA
     Dosage: 0.2 MG, DAILY
     Route: 048
     Dates: end: 20151202
  5. MAGMITT [Concomitant]
     Active Substance: MAGNESIUM OXIDE
     Indication: CONSTIPATION
     Dosage: 990 MG, DAILY
     Route: 048
     Dates: end: 20151202
  6. FOLIAMIN [Concomitant]
     Active Substance: FOLIC ACID
     Indication: FOLATE DEFICIENCY
     Dosage: 10 MG, DAILY
     Route: 048
     Dates: end: 20151202
  7. CALONAL [Concomitant]
     Active Substance: ACETAMINOPHEN
     Indication: BACK PAIN
     Dosage: 800 MG, DAILY
     Route: 048
     Dates: end: 20151202
  8. SAMSCA [Concomitant]
     Active Substance: TOLVAPTAN
     Indication: CARDIAC FAILURE CHRONIC
     Dosage: 7.5 MG, DAILY
     Route: 048
     Dates: end: 20151202
  9. ACARDI [Concomitant]
     Indication: CARDIAC FAILURE CHRONIC
     Dosage: 2.50 MG, DAILY
     Route: 048
     Dates: end: 20151202
  10. WARFARIN /00014803/ [Concomitant]
     Active Substance: WARFARIN
     Indication: ATRIAL FIBRILLATION
     Dosage: 1.25 MG, DAILY
     Route: 048
     Dates: end: 20151202

REACTIONS (4)
  - Septic shock [Unknown]
  - Blood creatine phosphokinase increased [Recovering/Resolving]
  - Hepatic function abnormal [Recovering/Resolving]
  - Cardiac failure [Fatal]

NARRATIVE: CASE EVENT DATE: 20151201
